FAERS Safety Report 15076643 (Version 1)
Quarter: 2018Q2

REPORT INFORMATION
  Report Type: Report from Study
  Country: ES (occurrence: ES)
  Receive Date: 20180627
  Receipt Date: 20180627
  Transmission Date: 20180711
  Serious: Yes (Hospitalization)
  Sender: FDA-Public Use
  Company Number: ES-TEVA-2018-ES-911956

PATIENT
  Age: 82 Year
  Sex: Male

DRUGS (7)
  1. ENOXAPARINA (2482A) [Concomitant]
     Dosage: 40 MILLIGRAM DAILY; 40 MG DIA
     Route: 058
     Dates: start: 20170921
  2. PARACETAMOL (12A) [Suspect]
     Active Substance: ACETAMINOPHEN
     Route: 042
     Dates: start: 20170921, end: 20170929
  3. ATORVASTATIN [Suspect]
     Active Substance: ATORVASTATIN
     Indication: ACUTE MYOCARDIAL INFARCTION
     Dosage: 80 MILLIGRAM DAILY; 80 MG CENA
     Route: 048
     Dates: start: 20170922, end: 20170929
  4. BISOPROLOL [Concomitant]
     Active Substance: BISOPROLOL
     Dosage: 2.5 MILLIGRAM DAILY; 2,5 MG DIA
     Route: 048
     Dates: start: 20170921
  5. LORAZEPAM (1864A) [Concomitant]
     Active Substance: LORAZEPAM
     Dosage: 1 MILLIGRAM DAILY; 1MG A LAS 23 HORAS
     Route: 048
     Dates: start: 20170921
  6. ENALAPRIL (2142A) [Concomitant]
     Active Substance: ENALAPRIL
     Dosage: 2.5 MILLIGRAM DAILY; 2,5 MG DIA
     Route: 048
     Dates: start: 20170921
  7. ADIRO 100 MG COMPRIMIDOS GASTRORRESISTENTES EFG , 30 COMPRIMIDOS [Concomitant]
     Active Substance: ASPIRIN
     Dosage: 0-1-0
     Route: 048
     Dates: start: 20170921

REACTIONS (1)
  - Hepatitis cholestatic [Recovered/Resolved]

NARRATIVE: CASE EVENT DATE: 20170927
